FAERS Safety Report 10883535 (Version 1)
Quarter: 2015Q1

REPORT INFORMATION
  Report Type: Report from Study
  Country: AT (occurrence: AT)
  Receive Date: 20150303
  Receipt Date: 20150303
  Transmission Date: 20150721
  Serious: Yes (Hospitalization)
  Sender: FDA-Public Use
  Company Number: AT-ROCHE-1466047

PATIENT
  Age: 55 Year
  Sex: Female
  Weight: 40.5 kg

DRUGS (9)
  1. DOXORUBICIN [Suspect]
     Active Substance: DOXORUBICIN
     Dosage: (- 25 PERCENT)
     Route: 042
     Dates: start: 20141006
  2. CARBOPLATIN. [Suspect]
     Active Substance: CARBOPLATIN
     Dosage: AUC 5 (-25 PERCENT) DOSE REDUCED
     Route: 042
     Dates: start: 20141006
  3. BEVACIZUMAB [Suspect]
     Active Substance: BEVACIZUMAB
     Indication: OVARIAN CANCER
     Dosage: MOST RECENT DOSE PRIOR TO EVENT WAS ON 05/SEP/2014, 28/NOV/2014, 14/NOV/2014, 16/JAN/2015
     Route: 042
     Dates: start: 20140905
  4. DOXORUBICIN [Suspect]
     Active Substance: DOXORUBICIN
     Indication: OVARIAN CANCER
     Dosage: MOST RECENT DOSE PRIOR TO EVENT WAS ADMINISTRED ON 05/SEP/2014, 31/OCT/2014, 28/NOV/2014, 02/JAN/201
     Route: 042
     Dates: start: 20140808
  5. POTASSIUM CHLORIDE. [Concomitant]
     Active Substance: POTASSIUM CHLORIDE
     Indication: HYPOKALAEMIA
     Dosage: DOSE: 60
     Route: 042
     Dates: start: 20140919
  6. CARBOPLATIN. [Suspect]
     Active Substance: CARBOPLATIN
     Indication: OVARIAN CANCER
     Dosage: MOST RECENT DOSE PRIOR TO EVENT 31/OCT/2014, 28/NOV/2014, 02/JAN/2015?AUC 5
     Route: 042
     Dates: start: 20140808
  7. TAZONAM [Concomitant]
     Active Substance: TAZOBACTAM
     Route: 042
     Dates: start: 20140919
  8. BEVACIZUMAB [Suspect]
     Active Substance: BEVACIZUMAB
     Route: 042
     Dates: start: 20140808
  9. MYCOSTATIN [Concomitant]
     Active Substance: NYSTATIN
     Route: 048
     Dates: start: 20140919

REACTIONS (3)
  - Thrombocytopenia [Recovered/Resolved]
  - Neutropenia [Recovered/Resolved]
  - Pancytopenia [Recovered/Resolved]

NARRATIVE: CASE EVENT DATE: 20140919
